FAERS Safety Report 14397462 (Version 1)
Quarter: 2018Q1

REPORT INFORMATION
  Report Type: Other
  Country: US (occurrence: US)
  Receive Date: 20180116
  Receipt Date: 20180116
  Transmission Date: 20180509
  Serious: Yes (Death)
  Sender: FDA-Public Use
  Company Number: US-CIPHER-2018-US-000010

PATIENT
  Age: 56 Year
  Sex: Male

DRUGS (1)
  1. CONZIP [Suspect]
     Active Substance: TRAMADOL HYDROCHLORIDE
     Dates: end: 2016

REACTIONS (3)
  - Toxicity to various agents [Fatal]
  - Cardiac arrest [Fatal]
  - Respiratory arrest [Fatal]

NARRATIVE: CASE EVENT DATE: 2016
